FAERS Safety Report 17922077 (Version 1)
Quarter: 2020Q2

REPORT INFORMATION
  Report Type: Spontaneous
  Country: US (occurrence: US)
  Receive Date: 20200619
  Receipt Date: 20200619
  Transmission Date: 20200714
  Serious: Yes (Other)
  Sender: FDA-Public Use
  Company Number: None

PATIENT
  Age: 37 Year
  Sex: Male
  Weight: 74 kg

DRUGS (10)
  1. COLCHICINE 0.6MG [Concomitant]
     Active Substance: COLCHICINE
     Dates: start: 20200612, end: 20200614
  2. PROBENACID 500MG [Concomitant]
     Dates: start: 20200612, end: 20200614
  3. HYDROCORTISONE 50MG [Concomitant]
     Dates: start: 20200611, end: 20200611
  4. ACETAMINOPHEN. [Concomitant]
     Active Substance: ACETAMINOPHEN
     Dates: start: 20200609, end: 20200614
  5. CEFTRIAXONE 1G IVPB [Concomitant]
     Dates: start: 20200609, end: 20200614
  6. DUONEB [Concomitant]
     Active Substance: ALBUTEROL SULFATE\IPRATROPIUM BROMIDE
     Dates: start: 20200611, end: 20200614
  7. ENOXAPARIN 40MG [Concomitant]
     Active Substance: ENOXAPARIN
     Dates: start: 20200609, end: 20200614
  8. REMDESIVIR. [Suspect]
     Active Substance: REMDESIVIR
     Indication: COVID-19
     Route: 040
     Dates: start: 20200610, end: 20200612
  9. ONDANSETRON 4MG [Concomitant]
     Active Substance: ONDANSETRON
     Dates: start: 20200610, end: 20200614
  10. PROMETHAZINE 12.5MG [Concomitant]
     Dates: start: 20200612, end: 20200612

REACTIONS (1)
  - Alanine aminotransferase increased [None]

NARRATIVE: CASE EVENT DATE: 20200612
